FAERS Safety Report 10181424 (Version 2)
Quarter: 2014Q3

REPORT INFORMATION
  Report Type: Spontaneous
  Country: GB (occurrence: GB)
  Receive Date: 20140519
  Receipt Date: 20140709
  Transmission Date: 20150326
  Serious: Yes (Death, Other)
  Sender: FDA-Public Use
  Company Number: GB-BRISTOL-MYERS SQUIBB COMPANY-20752804

PATIENT
  Age: 68 Year
  Sex: Male

DRUGS (8)
  1. CLOZARIL [Suspect]
     Active Substance: CLOZAPINE
     Indication: SCHIZOPHRENIA, PARANOID TYPE
     Route: 048
     Dates: start: 20010701
  2. LACTULOSE. [Concomitant]
     Active Substance: LACTULOSE
     Route: 048
  3. FYBOGEL [Concomitant]
     Active Substance: PLANTAGO OVATA SEED
     Route: 048
  4. SIMVASTATIN. [Concomitant]
     Active Substance: SIMVASTATIN
     Route: 048
  5. METFORMIN HCL [Suspect]
     Active Substance: METFORMIN HYDROCHLORIDE
     Dosage: TOTAL DOSE: 2GM
     Route: 048
  6. ARIPIPRAZOLE [Suspect]
     Active Substance: ARIPIPRAZOLE
     Indication: SCHIZOPHRENIA, PARANOID TYPE
     Route: 048
  7. FLUOXETINE [Suspect]
     Active Substance: FLUOXETINE\FLUOXETINE HYDROCHLORIDE
     Indication: SCHIZOPHRENIA, PARANOID TYPE
     Route: 048
  8. ASPIRIN. [Suspect]
     Active Substance: ASPIRIN
     Route: 048

REACTIONS (6)
  - Death [Fatal]
  - Arteriosclerosis coronary artery [Fatal]
  - Type 2 diabetes mellitus [Fatal]
  - Myocardial infarction [Fatal]
  - Myocardial ischaemia [Fatal]
  - Blood cholesterol increased [Unknown]

NARRATIVE: CASE EVENT DATE: 20140420
